FAERS Safety Report 4399237-X (Version None)
Quarter: 2004Q2

REPORT INFORMATION
  Report Type: 
  Country: None (occurrence: None)
  Receive Date: 20040621
  Receipt Date: 20031226
  Transmission Date: 20050107
  Serious: Yes (Other)
  Sender: FDA-Public Use
  Company Number: USA-2003-0008910

PATIENT
  Age: 30 Year
  Sex: Male
  Weight: 86.2 kg

DRUGS (7)
  1. OXYCONTIN [Suspect]
     Indication: PAIN
     Dosage: ORAL
     Route: 048
     Dates: start: 19991201
  2. PERCOCET [Concomitant]
  3. DAYPRO [Concomitant]
  4. ELAVIL [Concomitant]
  5. BUMETANIDE [Concomitant]
  6. NEURONTIN [Concomitant]
  7. ROXICET [Concomitant]

REACTIONS (27)
  - ARTHROPOD BITE [None]
  - CONFUSIONAL STATE [None]
  - CONSTIPATION [None]
  - DEPRESSION [None]
  - DIARRHOEA [None]
  - DRUG DEPENDENCE [None]
  - DRUG INEFFECTIVE [None]
  - DRUG TOLERANCE [None]
  - DRUG WITHDRAWAL SYNDROME [None]
  - DRY MOUTH [None]
  - ERECTILE DYSFUNCTION [None]
  - GASTROOESOPHAGEAL REFLUX DISEASE [None]
  - GROIN PAIN [None]
  - HEADACHE [None]
  - HYPOAESTHESIA [None]
  - INSOMNIA [None]
  - IRRITABILITY [None]
  - MUSCULAR WEAKNESS [None]
  - NIGHT SWEATS [None]
  - PARAESTHESIA [None]
  - PRURITUS GENERALISED [None]
  - PYREXIA [None]
  - TINEA CRURIS [None]
  - TREMOR [None]
  - VISUAL DISTURBANCE [None]
  - WEIGHT DECREASED [None]
  - WEIGHT INCREASED [None]
